FAERS Safety Report 20739162 (Version 1)
Quarter: 2022Q2

REPORT INFORMATION
  Report Type: Report from Study
  Country: US (occurrence: US)
  Receive Date: 20220422
  Receipt Date: 20220422
  Transmission Date: 20220720
  Serious: Yes (Hospitalization)
  Sender: FDA-Public Use
  Company Number: US-Accord-261165

PATIENT
  Age: 40 Year
  Sex: Male

DRUGS (2)
  1. CLOZAPINE [Suspect]
     Active Substance: CLOZAPINE
     Indication: Schizoaffective disorder
     Dosage: DAILY
     Route: 048
  2. THORAZINE [Concomitant]
     Active Substance: CHLORPROMAZINE
     Dosage: DAILY
     Route: 048

REACTIONS (2)
  - Psychotic disorder [Unknown]
  - Agitation [Unknown]

NARRATIVE: CASE EVENT DATE: 20211101
